FAERS Safety Report 8762276 (Version 8)
Quarter: 2014Q2

REPORT INFORMATION
  Report Type: Report from Study
  Country: PL (occurrence: PL)
  Receive Date: 20120830
  Receipt Date: 20140529
  Transmission Date: 20141212
  Serious: Yes (Death, Hospitalization, Other)
  Sender: FDA-Public Use
  Company Number: PL-CELGENEUS-129-21880-12072995

PATIENT
  Age: 73 Year
  Sex: Male
  Weight: 68 kg

DRUGS (44)
  1. REVLIMID [Suspect]
     Indication: PLASMA CELL MYELOMA
     Dosage: 25 MILLIGRAM
     Route: 048
     Dates: start: 20110701, end: 20110721
  2. REVLIMID [Suspect]
     Dosage: 25 MILLIGRAM
     Route: 048
     Dates: start: 20120504, end: 20120507
  3. REVLIMID [Suspect]
     Dosage: 25 MILLIGRAM
     Route: 048
     Dates: start: 20120510, end: 20120520
  4. REVLIMID [Suspect]
     Dosage: 10 MILLIGRAM
     Route: 048
     Dates: start: 20120521, end: 20120524
  5. REVLIMID [Suspect]
     Dosage: 25 MILLIGRAM
     Route: 048
     Dates: start: 20120601, end: 20120621
  6. REVLIMID [Suspect]
     Dosage: 15 MILLIGRAM
     Route: 048
     Dates: start: 20120710, end: 20120719
  7. DEXAMETHASONE [Suspect]
     Indication: PLASMA CELL MYELOMA
     Route: 065
     Dates: start: 20110701, end: 20110722
  8. DEXAMETHASONE [Suspect]
     Route: 065
     Dates: start: 20120629, end: 20120720
  9. ASPARGIN [Concomitant]
     Indication: HYPOKALAEMIA
     Dosage: 250+250MG
     Route: 048
     Dates: start: 20120210
  10. ASPARGIN [Concomitant]
     Indication: PROPHYLAXIS
     Route: 065
  11. ASPIRIN PROTECT [Concomitant]
     Indication: ANTICOAGULANT THERAPY
     Dosage: 100 MILLIGRAM
     Route: 048
     Dates: start: 20110630
  12. ASPIRIN PROTECT [Concomitant]
     Indication: ANTIPLATELET THERAPY
     Route: 065
  13. ATROVENT N [Concomitant]
     Indication: BRONCHITIS CHRONIC
     Dosage: 120 MICROGRAM
     Route: 055
     Dates: start: 20100422
  14. DIUVER [Concomitant]
     Indication: HYPERTENSION
     Dosage: 10 MILLIGRAM
     Route: 048
     Dates: start: 20120615, end: 20120805
  15. DOLFORIN [Concomitant]
     Indication: PAIN
     Dosage: 2400 MICROGRAM
     Route: 062
     Dates: start: 20120309
  16. DOLFORIN [Concomitant]
     Dosage: 2400 MICROGRAM
     Route: 062
     Dates: start: 20120113
  17. HEVIRAN [Concomitant]
     Indication: ANTIVIRAL PROPHYLAXIS
     Dosage: 400 MILLIGRAM
     Route: 048
     Dates: start: 20110630
  18. IPRES [Concomitant]
     Indication: HYPERTENSION
     Dosage: 1.5 MILLIGRAM
     Route: 048
     Dates: start: 20061218
  19. LANZUL S [Concomitant]
     Indication: PROPHYLAXIS AGAINST GASTROINTESTINAL ULCER
     Dosage: 15 MILLIGRAM
     Route: 048
     Dates: start: 20110630
  20. MAGNEZIN [Concomitant]
     Indication: ADVERSE EVENT
     Dosage: 390 MILLIGRAM
     Route: 048
     Dates: start: 20120309, end: 20120629
  21. MAGNEZIN [Concomitant]
     Dosage: 780 MILLIGRAM
     Route: 048
     Dates: start: 20120629, end: 20120704
  22. MAGNEZIN [Concomitant]
     Dosage: 390 MILLIGRAM
     Route: 048
     Dates: start: 20120704, end: 20120723
  23. SEVREDOL [Concomitant]
     Indication: PAIN
     Route: 048
     Dates: start: 201103
  24. TEVAGRASTIN [Concomitant]
     Indication: NEUTROPENIA
     Dosage: JM
     Route: 058
     Dates: start: 20120604, end: 20120610
  25. VITRUM [Concomitant]
     Indication: HYPOCALCAEMIA
     Dosage: 600+D400MG + UG
     Route: 048
     Dates: start: 20061218, end: 20120726
  26. VITRUM [Concomitant]
     Indication: PROPHYLAXIS
     Route: 048
     Dates: start: 20120727, end: 20120805
  27. ZARZIO [Concomitant]
     Indication: ADVERSE EVENT
     Dosage: JM
     Route: 058
     Dates: start: 20120704, end: 20120709
  28. MERCAPTOPURYNA [Concomitant]
     Indication: ACUTE MYELOID LEUKAEMIA
     Dosage: 2 TABLET
     Route: 048
     Dates: start: 20120810, end: 20120820
  29. BISACODYL [Concomitant]
     Indication: CONSTIPATION
     Route: 054
     Dates: start: 20120729, end: 20120729
  30. DIH [Concomitant]
     Indication: HAEMORRHOIDS
     Dosage: 4 TABLET
     Route: 048
     Dates: start: 20120730, end: 20120805
  31. ESTAZOLAM [Concomitant]
     Indication: INSOMNIA
     Route: 048
     Dates: start: 20120724, end: 20120826
  32. FUROSEMIDE [Concomitant]
     Indication: HYPERTENSION
     Dosage: 80 MILLIGRAM
     Route: 048
     Dates: start: 20120731, end: 20120810
  33. FUROSEMIDE [Concomitant]
     Dosage: 40 MILLIGRAM
     Route: 048
     Dates: start: 20120811, end: 20120826
  34. HEMORECTAL [Concomitant]
     Indication: HAEMORRHOIDS
     Dosage: 2 UNKNOWN
     Route: 054
     Dates: start: 20120730, end: 20120805
  35. KALIUM CHLORATUM [Concomitant]
     Indication: HYPOKALAEMIA
     Route: 041
     Dates: start: 20120819, end: 20120825
  36. LACTULOSA [Concomitant]
     Indication: CONSTIPATION
     Dosage: 45 MILLILITER
     Route: 048
     Dates: start: 20120729, end: 20120731
  37. LIGNOCAINUM [Concomitant]
     Indication: CONSTIPATION
     Route: 041
     Dates: start: 20120819, end: 20120824
  38. MILURIT [Concomitant]
     Indication: TUMOUR LYSIS SYNDROME
     Dosage: .3 GRAM
     Route: 048
     Dates: start: 20120807, end: 20120809
  39. MILURIT [Concomitant]
     Dosage: .1 GRAM
     Route: 048
     Dates: start: 20120810, end: 20120826
  40. NYSTATIN [Concomitant]
     Indication: PROPHYLAXIS
     Dosage: 20 MILLIGRAM/MILLILITERS
     Route: 048
     Dates: start: 20120725, end: 20120810
  41. PERFALGAN [Concomitant]
     Indication: LUNG INFECTION
     Route: 041
     Dates: start: 20120725, end: 20120725
  42. TREXAN [Concomitant]
     Indication: ACUTE MYELOID LEUKAEMIA
     Dosage: 2 TABLET
     Route: 048
     Dates: start: 20120810, end: 20120818
  43. MILGAMMA [Concomitant]
     Indication: PRODUCT USED FOR UNKNOWN INDICATION
     Route: 065
  44. GRANULOCYTE COLONY-STIMULATING FACTOR NOS [Concomitant]
     Indication: PRODUCT USED FOR UNKNOWN INDICATION
     Route: 065

REACTIONS (5)
  - Acute myeloid leukaemia [Fatal]
  - Lung infection [Recovered/Resolved]
  - Anaemia [Recovered/Resolved]
  - Anaemia [Recovered/Resolved]
  - Febrile neutropenia [Recovered/Resolved]
